FAERS Safety Report 25902586 (Version 1)
Quarter: 2025Q4

REPORT INFORMATION
  Report Type: Spontaneous
  Country: CA (occurrence: CA)
  Receive Date: 20251009
  Receipt Date: 20251009
  Transmission Date: 20260117
  Serious: Yes (Hospitalization, Disabling, Other)
  Sender: PFIZER
  Company Number: CA-PFIZER INC-202500199598

PATIENT
  Age: 46 Year
  Sex: Male

DRUGS (3)
  1. DEPO-MEDROL [Suspect]
     Active Substance: METHYLPREDNISOLONE ACETATE
     Indication: Seronegative arthritis
     Dosage: UNK
     Route: 014
  2. FOLIC ACID [Concomitant]
     Active Substance: FOLIC ACID
     Dosage: UNK
  3. METHOTREXATE [Concomitant]
     Active Substance: METHOTREXATE
     Dosage: UNK

REACTIONS (4)
  - Arthritis bacterial [Recovering/Resolving]
  - Atypical mycobacterial infection [Recovering/Resolving]
  - Finger amputation [Recovering/Resolving]
  - Osteomyelitis [Recovering/Resolving]
